FAERS Safety Report 9307621 (Version 1)
Quarter: 2013Q2

REPORT INFORMATION
  Report Type: Spontaneous
  Country: US (occurrence: US)
  Receive Date: 20130524
  Receipt Date: 20130524
  Transmission Date: 20140414
  Serious: No
  Sender: FDA-Public Use
  Company Number: US-PFIZER INC-2013157366

PATIENT
  Age: 61 Year
  Sex: Female
  Weight: 48.98 kg

DRUGS (3)
  1. SULFASALAZINE [Suspect]
     Indication: CROHN^S DISEASE
     Dosage: 1000 MG (2 TABLETS OF 500MG), 4X/DAY
     Route: 048
     Dates: start: 2000, end: 2000
  2. ZOLOFT [Concomitant]
  3. SYNTHROID [Concomitant]

REACTIONS (1)
  - Drug ineffective [Unknown]
